FAERS Safety Report 7927989-8 (Version None)
Quarter: 2011Q4

REPORT INFORMATION
  Report Type: 
  Country: None (occurrence: None)
  Receive Date: 20111118
  Receipt Date: 20111109
  Transmission Date: 20120403
  Serious: Yes (Hospitalization, Other)
  Sender: FDA-Public Use
  Company Number: US-BAYER-2011-001413

PATIENT
  Age: 51 Year
  Sex: Female
  Weight: 69.388 kg

DRUGS (2)
  1. YAZ [Suspect]
     Indication: PREMENSTRUAL SYNDROME
     Dosage: UNK
     Route: 048
     Dates: start: 20080801, end: 20081201
  2. CALCIUM [Concomitant]

REACTIONS (5)
  - PAIN [None]
  - EMOTIONAL DISTRESS [None]
  - LIMB INJURY [None]
  - DEEP VEIN THROMBOSIS [None]
  - OEDEMA PERIPHERAL [None]
